FAERS Safety Report 18140723 (Version 1)
Quarter: 2020Q3

REPORT INFORMATION
  Report Type: Report from Study
  Country: US (occurrence: US)
  Receive Date: 20200812
  Receipt Date: 20200812
  Transmission Date: 20201103
  Serious: Yes (Other)
  Sender: FDA-Public Use
  Company Number: US-GILEAD-2020-0489215

PATIENT
  Age: 57 Year
  Sex: Male

DRUGS (6)
  1. CENTRUM A TO ZINC [Concomitant]
     Active Substance: MINERALS\VITAMINS
  2. TENOFOVIR DISOPROXIL FUMARATE. [Suspect]
     Active Substance: TENOFOVIR DISOPROXIL FUMARATE
     Indication: CHRONIC HEPATITIS B
     Route: 065
  3. COLD AND FLU RELIEF [Concomitant]
     Active Substance: ACETAMINOPHEN\DEXTROMETHORPHAN HYDROBROMIDE\DOXYLAMINE SUCCINATE
  4. TENOFOVIR DISOPROXIL FUMARATE. [Concomitant]
     Active Substance: TENOFOVIR DISOPROXIL FUMARATE
  5. TYLENOL [Concomitant]
     Active Substance: ACETAMINOPHEN
  6. COUGH DROPS [Concomitant]

REACTIONS (2)
  - Osteoporosis [Unknown]
  - Influenza [Unknown]
